FAERS Safety Report 10290636 (Version 1)
Quarter: 2014Q3

REPORT INFORMATION
  Report Type: Spontaneous
  Country: IT (occurrence: None)
  Receive Date: 20140708
  Receipt Date: 20140708
  Transmission Date: 20150326
  Serious: Yes (Other)
  Sender: FDA-Public Use
  Company Number: AUR-APL-2014-07213

PATIENT
  Age: 31 Year
  Sex: Male

DRUGS (1)
  1. AMOXICILLIN. [Suspect]
     Active Substance: AMOXICILLIN
     Indication: PRODUCT USED FOR UNKNOWN INDICATION
     Dosage: UNK DOSE, UNKNOWN
     Dates: start: 20140109, end: 20140109

REACTIONS (2)
  - Erythema [None]
  - Vomiting [None]

NARRATIVE: CASE EVENT DATE: 20140109
